FAERS Safety Report 18590093 (Version 1)
Quarter: 2020Q4

REPORT INFORMATION
  Report Type: Spontaneous
  Country: US (occurrence: US)
  Receive Date: 20201207
  Receipt Date: 20201207
  Transmission Date: 20210114
  Serious: No
  Sender: FDA-Public Use
  Company Number: None

PATIENT
  Age: 51 Year
  Sex: Female

DRUGS (2)
  1. ACETAMINOPHEN. [Concomitant]
     Active Substance: ACETAMINOPHEN
  2. GANCICLOVIR 500 MG FRESENIUS KABI USA [Suspect]
     Active Substance: GANCICLOVIR
     Indication: DISSEMINATED CYTOMEGALOVIRAL INFECTION
     Route: 042
     Dates: start: 20201111, end: 20201124

REACTIONS (3)
  - Dermatitis contact [None]
  - Rash papular [None]
  - Injection site hypersensitivity [None]

NARRATIVE: CASE EVENT DATE: 20201124
